FAERS Safety Report 9412098 (Version 1)
Quarter: 2013Q2

REPORT INFORMATION
  Report Type: Spontaneous
  Country: FR (occurrence: None)
  Receive Date: 20130415
  Receipt Date: 20130415
  Transmission Date: 20140414
  Serious: Yes (Disabling)
  Sender: FDA-Public Use
  Company Number: SYM-2013-01485

PATIENT
  Age: 78 Year
  Sex: Female

DRUGS (5)
  1. FLAGYL [Suspect]
     Indication: KLEBSIELLA SEPSIS
     Route: 048
     Dates: start: 201212, end: 20130206
  2. AMOXICILLIN/CLAVULANIC ACID (SPEKTRAMOX) (CLAVULANATE POTASSIUM, AMOXICILLIN TRIHYDRATE) [Concomitant]
  3. LOXEN (NICARDIPINE HYDROCHLORIDE) (NICARDIPINE HYDROCHLORIDE) [Concomitant]
  4. TAHOR (ATORVASTATIN CALCIUM) (ATORVASTATIN CALCIUM) [Concomitant]
  5. XANAX [Concomitant]

REACTIONS (1)
  - Neuropathy peripheral [None]
